FAERS Safety Report 11139553 (Version 1)
Quarter: 2015Q2

REPORT INFORMATION
  Report Type: Spontaneous
  Country: US (occurrence: None)
  Receive Date: 20150526
  Receipt Date: 20150526
  Transmission Date: 20150821
  Serious: Yes (Disabling)
  Sender: FDA-Public Use
  Company Number: None

PATIENT
  Age: 54 Year
  Sex: Female
  Weight: 70.31 kg

DRUGS (15)
  1. DULOXETINE 60 MG [Suspect]
     Active Substance: DULOXETINE
     Indication: ANXIETY
     Dosage: DULOXETINE ONCE DAILY TAKEN BY MOUTH
     Route: 048
     Dates: start: 20150222, end: 20150525
  2. CELEBREX [Concomitant]
     Active Substance: CELECOXIB
  3. HYDROCODONE [Concomitant]
     Active Substance: HYDROCODONE
  4. DULERA [Concomitant]
     Active Substance: FORMOTEROL FUMARATE DIHYDRATE\MOMETASONE FUROATE
  5. DULOXETINE 60 MG [Suspect]
     Active Substance: DULOXETINE
     Indication: DEPRESSION
     Dosage: DULOXETINE ONCE DAILY TAKEN BY MOUTH
     Route: 048
     Dates: start: 20150222, end: 20150525
  6. DULOXETINE 60 MG [Suspect]
     Active Substance: DULOXETINE
     Indication: PAIN
     Dosage: DULOXETINE ONCE DAILY TAKEN BY MOUTH
     Route: 048
     Dates: start: 20150222, end: 20150525
  7. DILTIAZEM [Concomitant]
     Active Substance: DILTIAZEM
  8. AMBIEN [Concomitant]
     Active Substance: ZOLPIDEM TARTRATE
  9. XANAX [Concomitant]
     Active Substance: ALPRAZOLAM
  10. TYLENOL PM [Concomitant]
     Active Substance: ACETAMINOPHEN\DIPHENHYDRAMINE
  11. CYMBALTA [Concomitant]
     Active Substance: DULOXETINE HYDROCHLORIDE
  12. FLONASE [Concomitant]
     Active Substance: FLUTICASONE PROPIONATE
  13. BUSPAR [Concomitant]
     Active Substance: BUSPIRONE HYDROCHLORIDE
  14. LAMICTAL [Concomitant]
     Active Substance: LAMOTRIGINE
  15. VITAMIN D3 [Concomitant]
     Active Substance: CHOLECALCIFEROL

REACTIONS (12)
  - Dizziness [None]
  - Feeling abnormal [None]
  - Depression [None]
  - Disease recurrence [None]
  - Social avoidant behaviour [None]
  - Panic attack [None]
  - Condition aggravated [None]
  - Product substitution issue [None]
  - Suicidal ideation [None]
  - Partner stress [None]
  - Arthralgia [None]
  - Asthenia [None]
